FAERS Safety Report 20164424 (Version 1)
Quarter: 2021Q4

REPORT INFORMATION
  Report Type: Spontaneous
  Country: US (occurrence: US)
  Receive Date: 20211209
  Receipt Date: 20211209
  Transmission Date: 20220304
  Serious: No
  Sender: FDA-Public Use
  Company Number: US-SA-SAC20211207000537

PATIENT
  Age: 59 Year
  Sex: Female

DRUGS (7)
  1. DUPIXENT [Suspect]
     Active Substance: DUPILUMAB
     Indication: Chronic rhinosinusitis with nasal polyps
     Dosage: 300 MG, QOW
     Route: 058
     Dates: start: 20200220, end: 202109
  2. BASAGLAR [Concomitant]
     Active Substance: INSULIN GLARGINE
  3. DIAZEPAM [Concomitant]
     Active Substance: DIAZEPAM
  4. LOSARTAN POTASSIUM [Concomitant]
     Active Substance: LOSARTAN POTASSIUM
  5. METFORMIN [Concomitant]
     Active Substance: METFORMIN HYDROCHLORIDE
  6. XHANCE [Concomitant]
     Active Substance: FLUTICASONE PROPIONATE
  7. DEXTROSE [Concomitant]
     Active Substance: DEXTROSE

REACTIONS (4)
  - Vomiting [Unknown]
  - Malaise [Unknown]
  - Diarrhoea [Unknown]
  - Surgery [Unknown]

NARRATIVE: CASE EVENT DATE: 20200201
